FAERS Safety Report 21125683 (Version 4)
Quarter: 2022Q3

REPORT INFORMATION
  Report Type: Spontaneous
  Country: FR (occurrence: FR)
  Receive Date: 20220725
  Receipt Date: 20220803
  Transmission Date: 20221027
  Serious: Yes (Life-Threatening, Hospitalization, Other)
  Sender: FDA-Public Use
  Company Number: None

PATIENT
  Age: 56 Year
  Sex: Male
  Weight: 90 kg

DRUGS (8)
  1. PAXLOVID [Suspect]
     Active Substance: NIRMATRELVIR\RITONAVIR
     Indication: COVID-19 treatment
     Dosage: [PF-07321332 150 MG]/[RITONAVIR 100 MG]; 2X/DAY
     Route: 048
     Dates: start: 20220702, end: 20220707
  2. PANTOPRAZOLE [Suspect]
     Active Substance: PANTOPRAZOLE
     Dosage: 40 MILLIGRAM, QD
     Route: 048
     Dates: start: 20220524
  3. RIFAXIMIN [Suspect]
     Active Substance: RIFAXIMIN
     Indication: Endocarditis bacterial
     Dosage: 550 MILLIGRAM, Q12H
     Route: 048
     Dates: start: 20220701, end: 20220704
  4. FUROSEMIDE [Suspect]
     Active Substance: FUROSEMIDE
     Dosage: 20 MILLIGRAM, QD
     Route: 048
     Dates: start: 20220617, end: 20220630
  5. CEFTRIAXONE SODIUM [Suspect]
     Active Substance: CEFTRIAXONE SODIUM
     Indication: Endocarditis bacterial
     Dosage: 1 GRAM, QD
     Route: 042
     Dates: start: 20220607, end: 20220620
  6. GENTAMICIN [Suspect]
     Active Substance: GENTAMICIN
     Indication: Endocarditis bacterial
     Dosage: 270 MILLIGRAM, QD
     Route: 042
     Dates: start: 20220704, end: 20220706
  7. AUGMENTIN [Suspect]
     Active Substance: AMOXICILLIN\CLAVULANATE POTASSIUM
     Indication: Endocarditis bacterial
     Dosage: 1 GRAM, Q8HR
     Route: 042
     Dates: start: 20220630, end: 20220630
  8. VANCOMYCIN [Suspect]
     Active Substance: VANCOMYCIN
     Indication: Endocarditis bacterial
     Dosage: 2 GRAM, Q12H
     Route: 042
     Dates: start: 20220630, end: 20220711

REACTIONS (1)
  - Stevens-Johnson syndrome [Not Recovered/Not Resolved]

NARRATIVE: CASE EVENT DATE: 20220710
